APPROVED DRUG PRODUCT: DICYCLOMINE HYDROCHLORIDE
Active Ingredient: DICYCLOMINE HYDROCHLORIDE
Strength: 10MG
Dosage Form/Route: CAPSULE;ORAL
Application: A089361 | Product #001
Applicant: PIONEER PHARMACEUTICALS INC
Approved: Jan 10, 1989 | RLD: No | RS: No | Type: DISCN